FAERS Safety Report 17514593 (Version 2)
Quarter: 2020Q2

REPORT INFORMATION
  Report Type: Report from Study
  Country: US (occurrence: US)
  Receive Date: 20200309
  Receipt Date: 20200403
  Transmission Date: 20200713
  Serious: Yes (Other)
  Sender: FDA-Public Use
  Company Number: US-ASTELLAS-2019US038358

PATIENT
  Age: 73 Year
  Sex: Female

DRUGS (2)
  1. MIRABEGRON [Suspect]
     Active Substance: MIRABEGRON
     Indication: MIXED INCONTINENCE
     Route: 048
  2. MIRABEGRON [Suspect]
     Active Substance: MIRABEGRON
     Route: 048

REACTIONS (6)
  - Fall [Unknown]
  - Therapeutic product effect incomplete [Unknown]
  - Spinal fracture [Unknown]
  - Intentional product use issue [Unknown]
  - Rheumatoid arthritis [Unknown]
  - Scoliosis [Unknown]

NARRATIVE: CASE EVENT DATE: 20200227
